FAERS Safety Report 11335140 (Version 1)
Quarter: 2015Q3

REPORT INFORMATION
  Report Type: Spontaneous
  Country: DE (occurrence: DE)
  Receive Date: 20150804
  Receipt Date: 20150804
  Transmission Date: 20151125
  Serious: Yes (Hospitalization)
  Sender: FDA-Public Use
  Company Number: DE-WATSON-2015-15998

PATIENT
  Sex: Female

DRUGS (22)
  1. HALDOL [Interacting]
     Active Substance: HALOPERIDOL
     Indication: PRODUCT USED FOR UNKNOWN INDICATION
     Dosage: 6 MG, DAILY
     Route: 048
     Dates: start: 20101229, end: 20110104
  2. SOLIAN [Interacting]
     Active Substance: AMISULPRIDE
     Dosage: 300 MG, DAILY
     Route: 048
     Dates: start: 20110118
  3. SOLIAN [Interacting]
     Active Substance: AMISULPRIDE
     Dosage: 400 MG, DAILY
     Route: 048
     Dates: start: 20110111, end: 20110117
  4. ABILIFY [Interacting]
     Active Substance: ARIPIPRAZOLE
     Dosage: 15 UNK UNKNOWN
     Route: 048
     Dates: start: 20110118, end: 20110127
  5. LORAZEPAM. [Concomitant]
     Active Substance: LORAZEPAM
     Dosage: 2,0 UNK UNKNOWN
     Route: 065
     Dates: start: 20101226
  6. HALDOL [Interacting]
     Active Substance: HALOPERIDOL
     Dosage: 6 MG, DAILY
     Route: 048
     Dates: start: 20101226
  7. SOLIAN [Interacting]
     Active Substance: AMISULPRIDE
     Indication: PRODUCT USED FOR UNKNOWN INDICATION
     Dosage: 100 MG, DAILY
     Route: 048
     Dates: start: 20110122, end: 20110125
  8. SOLIAN [Interacting]
     Active Substance: AMISULPRIDE
     Dosage: 200 MG, DAILY
     Route: 048
     Dates: start: 20110119
  9. SOLIAN [Interacting]
     Active Substance: AMISULPRIDE
     Dosage: 100 MG, DAILY
     Route: 048
     Dates: start: 20110104, end: 20110110
  10. LORAZEPAM. [Concomitant]
     Active Substance: LORAZEPAM
     Indication: PRODUCT USED FOR UNKNOWN INDICATION
     Dosage: 0,5 UNK UNKNOWN
     Route: 065
     Dates: start: 20110118, end: 20110121
  11. LORAZEPAM. [Concomitant]
     Active Substance: LORAZEPAM
     Dosage: 1,0 UNK UNKNOWN
     Route: 065
     Dates: start: 20110104, end: 20110117
  12. CITALOPRAM [Suspect]
     Active Substance: CITALOPRAM HYDROBROMIDE
     Indication: PRODUCT USED FOR UNKNOWN INDICATION
     Dosage: 40 MG, DAILY
     Route: 048
     Dates: start: 20110110, end: 20110205
  13. CITALOPRAM [Interacting]
     Active Substance: CITALOPRAM HYDROBROMIDE
     Dosage: 10 MG, DAILY
     Route: 048
     Dates: start: 20101226
  14. BIPERIDEN [Concomitant]
     Active Substance: BIPERIDEN
     Indication: PRODUCT USED FOR UNKNOWN INDICATION
     Dosage: 4 MG, DAILY
     Route: 048
     Dates: start: 20110104, end: 20110131
  15. CITALOPRAM [Interacting]
     Active Substance: CITALOPRAM HYDROBROMIDE
     Dosage: 20 MG, DAILY
     Route: 048
     Dates: start: 20101229, end: 20110109
  16. ABILIFY [Interacting]
     Active Substance: ARIPIPRAZOLE
     Dosage: 10 UNK UNKNOWN
     Route: 048
     Dates: start: 20110115
  17. LORAZEPAM. [Concomitant]
     Active Substance: LORAZEPAM
     Dosage: 1,5 UNK UNKNOWN
     Route: 065
     Dates: start: 20111229
  18. QUETIAPIN [Concomitant]
     Active Substance: QUETIAPINE
     Indication: PRODUCT USED FOR UNKNOWN INDICATION
     Dosage: 100 UNK UNKNOWN
     Route: 065
     Dates: start: 20110126
  19. ABILIFY [Interacting]
     Active Substance: ARIPIPRAZOLE
     Dosage: 5 UNK UNKNOWN
     Route: 048
     Dates: start: 20110112
  20. ABILIFY [Interacting]
     Active Substance: ARIPIPRAZOLE
     Indication: PRODUCT USED FOR UNKNOWN INDICATION
     Dosage: 5 UNK UNKNOWN
     Route: 048
     Dates: start: 20110205
  21. ABILIFY [Interacting]
     Active Substance: ARIPIPRAZOLE
     Dosage: 10 UNK UNKNOWN
     Route: 048
     Dates: start: 20110128, end: 20110204
  22. QUETIAPIN [Concomitant]
     Active Substance: QUETIAPINE
     Dosage: 50 UNK UNKNOWN
     Route: 065
     Dates: start: 20110125

REACTIONS (2)
  - Drug interaction [Recovering/Resolving]
  - Tremor [Recovering/Resolving]

NARRATIVE: CASE EVENT DATE: 20110104
